FAERS Safety Report 13321249 (Version 1)
Quarter: 2017Q1

REPORT INFORMATION
  Report Type: Spontaneous
  Country: US (occurrence: US)
  Receive Date: 20170310
  Receipt Date: 20170310
  Transmission Date: 20170428
  Serious: Yes (Other)
  Sender: FDA-Public Use
  Company Number: US-ASTRAZENECA-2017SE25036

PATIENT
  Age: 72 Year
  Sex: Male
  Weight: 61.2 kg

DRUGS (7)
  1. SOTALOL. [Concomitant]
     Active Substance: SOTALOL
     Route: 048
  2. SODIUM BICARBONATE. [Concomitant]
     Active Substance: SODIUM BICARBONATE
     Route: 048
  3. CRESTOR [Suspect]
     Active Substance: ROSUVASTATIN CALCIUM
     Indication: HYPERCHOLESTEROLAEMIA
     Route: 048
  4. GLYBURIDE. [Concomitant]
     Active Substance: GLYBURIDE
     Route: 048
  5. SEROQUEL [Suspect]
     Active Substance: QUETIAPINE FUMARATE
     Indication: SLEEP DISORDER
     Route: 048
     Dates: start: 2016
  6. AMLODIPINE [Concomitant]
     Active Substance: AMLODIPINE BESYLATE
     Route: 048
  7. ELIQUIS [Concomitant]
     Active Substance: APIXABAN
     Route: 048

REACTIONS (5)
  - Drug dose omission [Not Recovered/Not Resolved]
  - Off label use [Unknown]
  - Feeling abnormal [Not Recovered/Not Resolved]
  - Hypertension [Unknown]
  - Product use issue [Unknown]

NARRATIVE: CASE EVENT DATE: 2016
